FAERS Safety Report 5495416-9 (Version None)
Quarter: 2007Q4

REPORT INFORMATION
  Report Type: 
  Country: None (occurrence: None)
  Receive Date: 20071023
  Receipt Date: 20071011
  Transmission Date: 20080405
  Serious: Yes (Other)
  Sender: FDA-Public Use
  Company Number: DSU-2007-00720

PATIENT
  Age: 64 Year
  Sex: Female
  Weight: 49.8957 kg

DRUGS (4)
  1. BENICAR [Suspect]
     Indication: HYPERTENSION
     Dosage: 20 MG (20 MG, QD) PER ORAL
     Route: 048
     Dates: start: 20070201, end: 20070916
  2. ZOCOR [Concomitant]
  3. ASPIRIN [Concomitant]
  4. VINEGAR [Concomitant]

REACTIONS (1)
  - MYOCARDIAL INFARCTION [None]
